FAERS Safety Report 6781409-8 (Version None)
Quarter: 2010Q2

REPORT INFORMATION
  Report Type: 
  Country: None (occurrence: None)
  Receive Date: 20100621
  Receipt Date: 20100226
  Transmission Date: 20101027
  Serious: No
  Sender: FDA-Public Use
  Company Number: US-AMGEN-KDL395583

PATIENT
  Sex: Female

DRUGS (5)
  1. ARANESP [Suspect]
     Indication: ANAEMIA
  2. TEVETEN [Concomitant]
  3. TOPROL-XL [Concomitant]
  4. MAPROTILINE [Concomitant]
  5. ASPIRIN [Concomitant]

REACTIONS (3)
  - HUNGER [None]
  - TREMOR [None]
  - WEIGHT INCREASED [None]
